FAERS Safety Report 9384258 (Version 1)
Quarter: 2013Q3

REPORT INFORMATION
  Report Type: Spontaneous
  Country: US (occurrence: None)
  Receive Date: 20130702
  Receipt Date: 20130702
  Transmission Date: 20140515
  Serious: No
  Sender: FDA-Public Use
  Company Number: None

PATIENT
  Age: 66 Year
  Sex: Female
  Weight: 79.38 kg

DRUGS (13)
  1. BYDUREON [Suspect]
     Indication: TYPE 2 DIABETES MELLITUS
     Dosage: 2MG/VIAL 1 INJECTION WEEKLY BY INJECTION
     Dates: start: 20130415, end: 20130429
  2. RAMIPRIL [Concomitant]
  3. ACTOS [Concomitant]
  4. METFORMIN [Concomitant]
  5. LANTUS SOLOSTAR [Concomitant]
  6. DIVALPROEX SODIUM ER [Concomitant]
  7. ATORVASTATIN [Concomitant]
  8. DONEPEZIL [Concomitant]
  9. VENLAFAXINE SR [Concomitant]
  10. LEVOTHYROXINE [Concomitant]
  11. CALCIUM [Concomitant]
  12. BIOTIN [Concomitant]
  13. FISH OIL [Concomitant]

REACTIONS (4)
  - Injection site erythema [None]
  - Injection site mass [None]
  - Deformity [None]
  - Drug hypersensitivity [None]
